FAERS Safety Report 25595494 (Version 2)
Quarter: 2025Q3

REPORT INFORMATION
  Report Type: Spontaneous
  Country: US (occurrence: US)
  Receive Date: 20250723
  Receipt Date: 20250814
  Transmission Date: 20251020
  Serious: Yes (Other)
  Sender: TEVA
  Company Number: US-TEVA-VS-3354980

PATIENT
  Age: 65 Year
  Sex: Male

DRUGS (1)
  1. METHYLPREDNISOLONE [Suspect]
     Active Substance: METHYLPREDNISOLONE
     Indication: Immunosuppressant drug therapy
     Dosage: HIGH-DOSE
     Route: 065

REACTIONS (3)
  - Pneumonitis [Unknown]
  - Drug ineffective [Unknown]
  - Respiratory distress [Unknown]
